FAERS Safety Report 10759836 (Version 1)
Quarter: 2015Q1

REPORT INFORMATION
  Report Type: Spontaneous
  Country: RU (occurrence: RU)
  Receive Date: 20150203
  Receipt Date: 20150203
  Transmission Date: 20150721
  Serious: Yes (Other)
  Sender: FDA-Public Use
  Company Number: RU-GLAXOSMITHKLINE-RU2015GSK011711

PATIENT
  Age: 75 Year
  Sex: Male

DRUGS (4)
  1. LEVODOPA [Suspect]
     Active Substance: LEVODOPA
     Indication: EXTRAPYRAMIDAL DISORDER
     Dosage: 500 UNK, UNK
  2. REQUIP [Suspect]
     Active Substance: ROPINIROLE HYDROCHLORIDE
     Indication: CEREBRAL ISCHAEMIA
     Dosage: 4 MG, QD
     Dates: start: 201407
  3. REQUIP [Suspect]
     Active Substance: ROPINIROLE HYDROCHLORIDE
     Indication: EXTRAPYRAMIDAL DISORDER
  4. LEVODOPA [Suspect]
     Active Substance: LEVODOPA
     Indication: CEREBRAL ISCHAEMIA
     Dosage: 250 MG, QD
     Dates: start: 201407

REACTIONS (8)
  - Hydrocephalus [Unknown]
  - Parkinson^s disease [Recovering/Resolving]
  - Weight decreased [Unknown]
  - Tearfulness [Unknown]
  - Irritability [Unknown]
  - Vascular encephalopathy [Unknown]
  - Depression [Recovering/Resolving]
  - Depressed mood [Unknown]
